FAERS Safety Report 11629096 (Version 2)
Quarter: 2015Q4

REPORT INFORMATION
  Report Type: Spontaneous
  Country: US (occurrence: US)
  Receive Date: 20151014
  Receipt Date: 20151026
  Transmission Date: 20160304
  Serious: Yes (Death)
  Sender: FDA-Public Use
  Company Number: US-PFIZER INC-2015339782

PATIENT
  Age: 72 Year
  Sex: Female

DRUGS (1)
  1. VFEND [Suspect]
     Active Substance: VORICONAZOLE
     Indication: LUNG DISORDER
     Dosage: UNK

REACTIONS (5)
  - Pulmonary fibrosis [Fatal]
  - Sepsis [Fatal]
  - Pneumothorax [Fatal]
  - Pneumonia [Fatal]
  - Respiratory failure [Fatal]
